FAERS Safety Report 16237621 (Version 1)
Quarter: 2019Q2

REPORT INFORMATION
  Report Type: Spontaneous
  Country: CR (occurrence: CR)
  Receive Date: 20190425
  Receipt Date: 20190425
  Transmission Date: 20190711
  Serious: Yes (Other)
  Sender: FDA-Public Use
  Company Number: CR-BAYER-2019-077646

PATIENT
  Sex: Female

DRUGS (2)
  1. YASMIN [Suspect]
     Active Substance: DROSPIRENONE\ETHINYL ESTRADIOL
     Route: 048
  2. YAZ [Suspect]
     Active Substance: DROSPIRENONE\ETHINYL ESTRADIOL
     Indication: MENSTRUAL CYCLE MANAGEMENT
     Dosage: UNK
     Route: 048

REACTIONS (15)
  - Inappropriate schedule of product administration [None]
  - Pain in extremity [None]
  - Metrorrhagia [None]
  - Peripheral swelling [None]
  - Headache [None]
  - Acne [None]
  - Eye discharge [None]
  - Off label use [None]
  - Adverse event [Recovered/Resolved]
  - Product use in unapproved indication [None]
  - Premenstrual syndrome [None]
  - Therapeutic response unexpected [None]
  - Fatigue [None]
  - Neuropathy peripheral [None]
  - Drug ineffective for unapproved indication [None]
